FAERS Safety Report 19143888 (Version 2)
Quarter: 2021Q2

REPORT INFORMATION
  Report Type: Spontaneous
  Country: US (occurrence: US)
  Receive Date: 20210416
  Receipt Date: 20210422
  Transmission Date: 20210717
  Serious: Yes (Other)
  Sender: FDA-Public Use
  Company Number: US-AUROBINDO-AUR-APL-2021-015131

PATIENT
  Age: 32 Year
  Sex: Female

DRUGS (9)
  1. GABAPENTIN. [Suspect]
     Active Substance: GABAPENTIN
     Dosage: 300 MG, 200 MG, 200 MG, AND 300 MG, EVERY FOUR HRS
     Route: 065
  2. GABAPENTIN. [Suspect]
     Active Substance: GABAPENTIN
     Dosage: 60 MILLIGRAM, DAILY
     Route: 065
  3. GABAPENTIN. [Suspect]
     Active Substance: GABAPENTIN
     Indication: ALCOHOL USE DISORDER
     Dosage: 300 MILLIGRAM, FOUR TIMES/DAY
     Route: 065
  4. GABAPENTIN. [Suspect]
     Active Substance: GABAPENTIN
     Dosage: 900 MILLIGRAM, DAILY
     Route: 065
  5. GABAPENTIN. [Suspect]
     Active Substance: GABAPENTIN
     Dosage: 100 MILLIGRAM
     Route: 065
  6. GABAPENTIN. [Suspect]
     Active Substance: GABAPENTIN
     Dosage: 100 MILLIGRAM, EVERY MORNING
     Route: 065
  7. GABAPENTIN. [Suspect]
     Active Substance: GABAPENTIN
     Dosage: UNK, 20?30 MG DOSE DECREMENTS PER MONTH
     Route: 065
  8. LISDEXAMFETAMINE [Concomitant]
     Active Substance: LISDEXAMFETAMINE
     Indication: ATTENTION DEFICIT HYPERACTIVITY DISORDER
     Dosage: 60 MILLIGRAM, DAILY
     Route: 065
  9. FLUOXETINE [Concomitant]
     Active Substance: FLUOXETINE HYDROCHLORIDE
     Indication: MAJOR DEPRESSION
     Dosage: 20 MILLIGRAM, DAILY
     Route: 065

REACTIONS (9)
  - Off label use [Recovered/Resolved]
  - Withdrawal syndrome [Recovered/Resolved]
  - Anxiety [Unknown]
  - Drug dependence [Recovered/Resolved]
  - Nausea [Unknown]
  - Hypoaesthesia [Unknown]
  - Muscle spasms [Unknown]
  - Hyperhidrosis [Unknown]
  - Tremor [Unknown]
